FAERS Safety Report 16884343 (Version 3)
Quarter: 2020Q1

REPORT INFORMATION
  Report Type: Spontaneous
  Country: US (occurrence: US)
  Receive Date: 20191004
  Receipt Date: 20200130
  Transmission Date: 20200409
  Serious: No
  Sender: FDA-Public Use
  Company Number: US-JNJFOC-20191003048

PATIENT
  Sex: Male

DRUGS (9)
  1. AMLODIPINE BESYLATE. [Concomitant]
     Active Substance: AMLODIPINE BESYLATE
  2. ASPIRIN                            /00002701/ [Concomitant]
     Active Substance: ASPIRIN
  3. ZYTIGA [Suspect]
     Active Substance: ABIRATERONE ACETATE
     Indication: PRODUCT USED FOR UNKNOWN INDICATION
     Route: 048
     Dates: start: 20190722, end: 20190821
  4. PREDNISONE. [Concomitant]
     Active Substance: PREDNISONE
  5. ZYTIGA [Suspect]
     Active Substance: ABIRATERONE ACETATE
     Route: 048
     Dates: start: 20191002, end: 20191023
  6. ZYTIGA [Suspect]
     Active Substance: ABIRATERONE ACETATE
     Route: 048
     Dates: start: 20191212
  7. MOEXIPRIL HCL [Concomitant]
     Active Substance: MOEXIPRIL HYDROCHLORIDE
  8. ZYTIGA [Suspect]
     Active Substance: ABIRATERONE ACETATE
     Route: 048
     Dates: start: 20190510, end: 20190619
  9. ELIGARD [Concomitant]
     Active Substance: LEUPROLIDE ACETATE

REACTIONS (3)
  - Off label use [Unknown]
  - Adverse event [Recovering/Resolving]
  - Incorrect dose administered [Unknown]
